FAERS Safety Report 6083590-5 (Version None)
Quarter: 2009Q1

REPORT INFORMATION
  Report Type: 
  Country: None (occurrence: None)
  Receive Date: 20090219
  Receipt Date: 20090213
  Transmission Date: 20090719
  Serious: Yes (Hospitalization)
  Sender: FDA-Public Use
  Company Number: PHHO2009FR01326

PATIENT
  Sex: Male
  Weight: 51 kg

DRUGS (11)
  1. ZOLEDRONIC ACID [Suspect]
     Indication: BONE SARCOMA
     Dosage: 2.5 MG
     Route: 042
     Dates: start: 20090116
  2. METHOTREXATE [Concomitant]
     Dosage: 18.7 MG
     Route: 042
     Dates: start: 20090113
  3. VITAMIN D [Concomitant]
  4. CALCIUM [Concomitant]
  5. STEROGYL [Concomitant]
  6. PHOSPHONEUROS [Concomitant]
  7. ZOPHREN [Concomitant]
  8. XANAX [Concomitant]
  9. SKENAN [Concomitant]
  10. LOVENOX [Concomitant]
  11. DUPHALAC [Concomitant]

REACTIONS (6)
  - CHEILITIS [None]
  - HYPOALBUMINAEMIA [None]
  - HYPOCALCAEMIA [None]
  - HYPOPHOSPHATAEMIA [None]
  - MUCOSAL INFLAMMATION [None]
  - VOMITING [None]
